FAERS Safety Report 7992125-9 (Version None)
Quarter: 2011Q4

REPORT INFORMATION
  Report Type: 
  Country: None (occurrence: None)
  Receive Date: 20111219
  Receipt Date: 20111020
  Transmission Date: 20120403
  Serious: No
  Sender: FDA-Public Use
  Company Number: US-ASTRAZENECA-2011SE63419

PATIENT
  Age: 58 Year
  Sex: Female
  Weight: 72.6 kg

DRUGS (6)
  1. CRESTOR [Suspect]
     Indication: BLOOD CHOLESTEROL
     Route: 048
     Dates: start: 20110701, end: 20110901
  2. GLUCOSAMINE [Concomitant]
     Indication: ARTHROPATHY
  3. LIPITOR [Concomitant]
  4. OTHER STATINS [Concomitant]
  5. CALCIUM [Concomitant]
     Indication: SUPPLEMENTATION THERAPY
  6. VITAMINS OTC [Concomitant]
     Indication: SUPPLEMENTATION THERAPY

REACTIONS (1)
  - ALOPECIA [None]
